FAERS Safety Report 24645573 (Version 1)
Quarter: 2024Q4

REPORT INFORMATION
  Report Type: Report from Study
  Country: US (occurrence: US)
  Receive Date: 20241121
  Receipt Date: 20241121
  Transmission Date: 20250114
  Serious: Yes (Other)
  Sender: JOHNSON AND JOHNSON
  Company Number: US-JNJFOC-20241129472

PATIENT
  Age: 5 Decade
  Sex: Female

DRUGS (8)
  1. SPRAVATO [Suspect]
     Active Substance: ESKETAMINE
     Indication: Depression
     Dosage: 56 MG, TOTAL OF 1 DOSE
     Route: 045
     Dates: start: 20230724, end: 20230724
  2. SPRAVATO [Suspect]
     Active Substance: ESKETAMINE
     Dosage: 84 MG, TOTAL OF 8 DOSES
     Route: 045
     Dates: start: 20230726, end: 20230825
  3. SPRAVATO [Suspect]
     Active Substance: ESKETAMINE
     Dosage: 112 MG, TOTAL OF 1 DOSE
     Route: 045
     Dates: start: 20230829, end: 20230829
  4. SPRAVATO [Suspect]
     Active Substance: ESKETAMINE
     Dosage: 84 MG, TOTAL OF 2 DOSES
     Route: 045
     Dates: start: 20230906, end: 20230908
  5. SPRAVATO [Suspect]
     Active Substance: ESKETAMINE
     Dosage: 112 MG, TOTAL OF 1 DOSE
     Route: 045
     Dates: start: 20230901, end: 20230901
  6. SPRAVATO [Suspect]
     Active Substance: ESKETAMINE
     Dosage: 84 MG, TOTAL OF 61 DOSES
     Route: 045
     Dates: start: 20230913, end: 20240821
  7. SPRAVATO [Suspect]
     Active Substance: ESKETAMINE
     Dosage: 56 MG, TOTAL OF 1 DOSE
     Route: 045
     Dates: start: 20241024, end: 20241024
  8. SPRAVATO [Suspect]
     Active Substance: ESKETAMINE
     Dosage: 84 MG, TOTAL OF 1 DOSE
     Route: 045
     Dates: start: 20241101, end: 20241101

REACTIONS (1)
  - Cardiac disorder [Unknown]
